FAERS Safety Report 4840228-X (Version None)
Quarter: 2005Q4

REPORT INFORMATION
  Report Type: 
  Country: None (occurrence: None)
  Receive Date: 20051129
  Receipt Date: 20051114
  Transmission Date: 20060501
  Serious: Yes (Hospitalization)
  Sender: FDA-Public Use
  Company Number: US-MERCK-0511USA02265

PATIENT
  Age: 52 Year
  Sex: Male
  Weight: 109 kg

DRUGS (8)
  1. VIOXX [Suspect]
     Indication: PAIN
     Route: 048
     Dates: start: 19980901, end: 20040920
  2. METHADONE HYDROCHLORIDE [Concomitant]
     Route: 065
  3. ULTRACET [Concomitant]
     Route: 065
  4. CLONAZEPAM [Concomitant]
     Route: 065
  5. REMERON [Concomitant]
     Route: 065
  6. ACCUPRIL [Concomitant]
     Route: 065
  7. SONATA [Concomitant]
     Route: 065
  8. PRAVACHOL [Concomitant]
     Route: 065

REACTIONS (2)
  - ARTERIAL OCCLUSIVE DISEASE [None]
  - MYOCARDIAL INFARCTION [None]
